FAERS Safety Report 17684430 (Version 1)
Quarter: 2020Q2

REPORT INFORMATION
  Report Type: Spontaneous
  Country: US (occurrence: US)
  Receive Date: 20200417
  Receipt Date: 20200417
  Transmission Date: 20200714
  Serious: No
  Sender: FDA-Public Use
  Company Number: None

PATIENT
  Age: 91 Year
  Sex: Male

DRUGS (4)
  1. PROTONIX [Concomitant]
     Active Substance: PANTOPRAZOLE SODIUM
  2. CAPECITABINE TAB 500MG [Suspect]
     Active Substance: CAPECITABINE
     Indication: COLORECTAL CANCER
     Route: 048
     Dates: start: 202004
  3. TAMSULOSIN [Concomitant]
     Active Substance: TAMSULOSIN
  4. CRESTOR [Concomitant]
     Active Substance: ROSUVASTATIN CALCIUM

REACTIONS (2)
  - Decreased appetite [None]
  - Diarrhoea [None]

NARRATIVE: CASE EVENT DATE: 20200417
